FAERS Safety Report 19208197 (Version 2)
Quarter: 2021Q2

REPORT INFORMATION
  Report Type: Spontaneous
  Country: CN (occurrence: CN)
  Receive Date: 20210503
  Receipt Date: 20210517
  Transmission Date: 20210717
  Serious: Yes (Hospitalization, Other)
  Sender: FDA-Public Use
  Company Number: CN-GLAXOSMITHKLINE-CN2021APC093766

PATIENT
  Sex: Male

DRUGS (2)
  1. BENLYSTA [Suspect]
     Active Substance: BELIMUMAB
     Indication: SYSTEMIC LUPUS ERYTHEMATOSUS
     Dosage: 480 MG
     Route: 042
     Dates: start: 20210408, end: 20210408
  2. BENLYSTA [Suspect]
     Active Substance: BELIMUMAB
     Dosage: 480 MG
     Route: 042
     Dates: start: 20210426, end: 20210426

REACTIONS (5)
  - Back pain [Recovered/Resolved]
  - Blood pressure increased [Unknown]
  - Hospitalisation [Unknown]
  - Dyspnoea [Unknown]
  - Angina pectoris [Recovered/Resolved]

NARRATIVE: CASE EVENT DATE: 20210426
